FAERS Safety Report 8824379 (Version 4)
Quarter: 2013Q4

REPORT INFORMATION
  Report Type: Spontaneous
  Country: US (occurrence: US)
  Receive Date: 20121004
  Receipt Date: 20131223
  Transmission Date: 20140711
  Serious: Yes (Hospitalization, Other)
  Sender: FDA-Public Use
  Company Number: US-BAYER-2012-102541

PATIENT
  Age: 25 Year
  Sex: Female
  Weight: 65.76 kg

DRUGS (5)
  1. YAZ [Suspect]
     Indication: ACNE
     Dosage: UNK
     Dates: start: 200803, end: 201007
  2. GIANVI [Suspect]
     Dosage: UNK
     Dates: start: 20100709, end: 20101003
  3. STEROIDS [Concomitant]
     Indication: CONTRAST MEDIA ALLERGY
  4. BENADRYL [Concomitant]
     Indication: CONTRAST MEDIA ALLERGY
  5. ZYRTEC [Concomitant]

REACTIONS (16)
  - Deep vein thrombosis [None]
  - Local swelling [None]
  - Pain in extremity [None]
  - Skin discolouration [None]
  - Pulmonary embolism [None]
  - Injury [None]
  - Pain [None]
  - Dyspnoea [None]
  - Pneumothorax [None]
  - Lethargy [None]
  - Asthenia [None]
  - Renal failure [None]
  - Psychological trauma [None]
  - Anxiety [None]
  - Anhedonia [None]
  - Fear of disease [None]
